FAERS Safety Report 8954037 (Version 1)
Quarter: 2012Q4

REPORT INFORMATION
  Report Type: 
  Country: ES (occurrence: ES)
  Receive Date: 20121207
  Receipt Date: 20121207
  Transmission Date: 20130627
  Serious: Yes (Other)
  Sender: FDA-Public Use
  Company Number: ES-BRISTOL-MYERS SQUIBB COMPANY-17155649

PATIENT
  Age: 67 Year
  Sex: Male

DRUGS (1)
  1. HYDROXYCARBAMIDE [Suspect]
     Indication: POLYCYTHAEMIA VERA
     Dosage: Later increased to 2g/d

REACTIONS (1)
  - Scleroderma [Recovered/Resolved]
